FAERS Safety Report 6791137-0 (Version None)
Quarter: 2010Q2

REPORT INFORMATION
  Report Type: 
  Country: None (occurrence: None)
  Receive Date: 20100624
  Receipt Date: 20100621
  Transmission Date: 20101027
  Serious: Yes (Other)
  Sender: FDA-Public Use
  Company Number: US-ELI_LILLY_AND_COMPANY-US200903003325

PATIENT
  Sex: Female
  Weight: 159.18 kg

DRUGS (13)
  1. BYETTA [Suspect]
     Indication: TYPE 2 DIABETES MELLITUS
     Dosage: 5 U, 2/D
     Dates: start: 20071231, end: 20080201
  2. BYETTA [Suspect]
     Dosage: 10 U, 2/D
     Dates: start: 20080204
  3. MORPHINE [Concomitant]
     Dosage: 30 MG, 2/D
     Route: 048
  4. PERCOCET [Concomitant]
  5. INSULIN LISPRO [Concomitant]
     Indication: TYPE 2 DIABETES MELLITUS
     Dosage: 26 U, 3/D
     Dates: start: 20071231, end: 20080201
  6. INSULIN LISPRO [Concomitant]
     Dosage: 26 U, EACH MORNING
     Dates: start: 20080204
  7. INSULIN LISPRO [Concomitant]
     Dosage: 34 U, UNK
     Dates: start: 20080204, end: 20080101
  8. INSULIN LISPRO [Concomitant]
     Dosage: 32 U, EACH EVENING
     Dates: start: 20080204
  9. INSULIN LISPRO [Concomitant]
     Dosage: 40 U, UNKNOWN
  10. LANTUS [Concomitant]
     Indication: TYPE 2 DIABETES MELLITUS
     Dosage: 6 U, 2/D
     Dates: start: 20071231
  11. LANTUS [Concomitant]
     Dosage: 60 U, 2/D
  12. TYLENOL                                 /SCH/ [Concomitant]
     Dates: start: 20020101
  13. METFORMIN HCL [Concomitant]
     Dosage: 1000 MG, 2/D

REACTIONS (5)
  - INJURY [None]
  - OFF LABEL USE [None]
  - PANCREATITIS [None]
  - RENAL INJURY [None]
  - WEIGHT INCREASED [None]
